FAERS Safety Report 7876977-9 (Version None)
Quarter: 2011Q4

REPORT INFORMATION
  Report Type: 
  Country: None (occurrence: None)
  Receive Date: 20111031
  Receipt Date: 20110804
  Transmission Date: 20120403
  Serious: No
  Sender: FDA-Public Use
  Company Number: US-ABBOTT-11P-163-0844909-00

PATIENT
  Sex: Male
  Weight: 18.614 kg

DRUGS (3)
  1. CREON [Suspect]
     Indication: DYSPEPSIA
  2. UNKNOWN SUPPLEMENTS [Suspect]
     Indication: MALABSORPTION
     Dates: start: 20110701
  3. CREON [Suspect]
     Indication: ILL-DEFINED DISORDER
     Dates: start: 20110712

REACTIONS (3)
  - DARK CIRCLES UNDER EYES [None]
  - POOR QUALITY SLEEP [None]
  - AGGRESSION [None]
